FAERS Safety Report 4308097-4 (Version None)
Quarter: 2004Q1

REPORT INFORMATION
  Report Type: 
  Country: None (occurrence: None)
  Receive Date: 20040301
  Receipt Date: 20030507
  Transmission Date: 20041129
  Serious: No
  Sender: FDA-Public Use
  Company Number: US-BRISTOL-MYERS SQUIBB COMPANY-12270237

PATIENT
  Age: 78 Year
  Sex: Female
  Weight: 88 kg

DRUGS (5)
  1. GLUCOPHAGE [Suspect]
     Indication: DIABETES MELLITUS
     Dosage: ORIGINAL DOSE:  500MG BID
     Route: 048
     Dates: start: 20030101
  2. PRAVACHOL [Concomitant]
  3. LESCOL [Concomitant]
  4. CLARITIN [Concomitant]
  5. HYDROCODONE [Concomitant]

REACTIONS (2)
  - BLOOD GLUCOSE FLUCTUATION [None]
  - HEADACHE [None]
